FAERS Safety Report 4626942-X (Version None)
Quarter: 2005Q2

REPORT INFORMATION
  Report Type: 
  Country: None (occurrence: None)
  Receive Date: 20050405
  Receipt Date: 20050324
  Transmission Date: 20051028
  Serious: Yes (Other)
  Sender: FDA-Public Use
  Company Number: FR-JNJFOC-20050400405

PATIENT
  Age: 30 Year
  Sex: Female

DRUGS (7)
  1. ZALDIAR [Suspect]
     Indication: DRUG USE FOR UNKNOWN INDICATION
     Route: 065
  2. AMLOR [Concomitant]
     Route: 065
  3. MOPRAL [Concomitant]
     Route: 065
  4. ASPIRIN [Concomitant]
     Route: 065
  5. CORTANCYL [Concomitant]
     Route: 065
  6. LODOZ (HYDROCHLOROTHIAZIDE/BISOPROLOL) [Concomitant]
  7. LODOZ (HYDROCHLOROTHIAZIDE/BISOPROLOL) [Concomitant]

REACTIONS (3)
  - ABORTION SPONTANEOUS [None]
  - DRUG EXPOSURE DURING PREGNANCY [None]
  - PREGNANCY [None]
